FAERS Safety Report 5393821-2 (Version None)
Quarter: 2007Q3

REPORT INFORMATION
  Report Type: 
  Country: None (occurrence: None)
  Receive Date: 20070719
  Receipt Date: 20070719
  Transmission Date: 20080115
  Serious: Yes (Life-Threatening, Hospitalization)
  Sender: FDA-Public Use
  Company Number: None

PATIENT
  Age: 56 Year
  Sex: Male
  Weight: 113.3993 kg

DRUGS (2)
  1. ABILIFY [Suspect]
     Dates: start: 20070623, end: 20070624
  2. ABILIFY [Suspect]
     Dates: start: 20070624, end: 20070624

REACTIONS (2)
  - MYALGIA [None]
  - PARALYSIS [None]
